FAERS Safety Report 12375641 (Version 1)
Quarter: 2016Q2

REPORT INFORMATION
  Report Type: Report from Study
  Country: CA (occurrence: CA)
  Receive Date: 20160517
  Receipt Date: 20160517
  Transmission Date: 20160815
  Serious: Yes (Death)
  Sender: FDA-Public Use
  Company Number: CA-JNJFOC-20160512157

PATIENT
  Age: 9 Year
  Sex: Female
  Weight: 54 kg

DRUGS (11)
  1. REMICADE [Suspect]
     Active Substance: INFLIXIMAB
     Indication: PSORIASIS
     Route: 042
     Dates: start: 201111, end: 201604
  2. FROVA [Concomitant]
     Active Substance: FROVATRIPTAN SUCCINATE
     Dosage: WHEN NECESSARY
     Route: 065
  3. DOVONEX [Concomitant]
     Active Substance: CALCIPOTRIENE
     Route: 061
  4. PROTOPIC [Concomitant]
     Active Substance: TACROLIMUS
     Route: 065
  5. HYDROVAL [Concomitant]
     Active Substance: HYDROCORTISONE VALERATE
     Route: 065
  6. VITAMIN D [Concomitant]
     Active Substance: CHOLECALCIFEROL
     Route: 065
  7. NOVO-GESIC [Concomitant]
     Route: 065
  8. AMITRIPTYLINE [Concomitant]
     Active Substance: AMITRIPTYLINE
     Dosage: 1/2 TABLET BEFORE BEDTIME
     Route: 065
  9. CALCIUM SUCCINATE [Concomitant]
     Dosage: TWICE A DAY
     Route: 065
  10. REMICADE [Suspect]
     Active Substance: INFLIXIMAB
     Indication: CHRONIC RECURRENT MULTIFOCAL OSTEOMYELITIS
     Route: 042
     Dates: start: 201111, end: 201604
  11. MORPHINE [Concomitant]
     Active Substance: MORPHINE
     Route: 065

REACTIONS (3)
  - Off label use [Unknown]
  - Product use issue [Unknown]
  - Completed suicide [Fatal]

NARRATIVE: CASE EVENT DATE: 201111
